FAERS Safety Report 6454536-2 (Version None)
Quarter: 2009Q4

REPORT INFORMATION
  Report Type: 
  Country: None (occurrence: None)
  Receive Date: 20091118
  Receipt Date: 20091106
  Transmission Date: 20100525
  Serious: Yes (Hospitalization)
  Sender: FDA-Public Use
  Company Number: TRP_06347_2009

PATIENT
  Sex: Male
  Weight: 97.1151 kg

DRUGS (4)
  1. RIBASPHERE [Suspect]
     Indication: HEPATITIS C
     Dosage: (1000 MG, DAILY)
     Dates: start: 20090616, end: 20091027
  2. PEGASYS [Suspect]
     Indication: HEPATITIS C
     Dosage: (180 UG 1X/WEEK)
     Dates: start: 20090616, end: 20091027
  3. ALINIA [Concomitant]
  4. TRUVADA [Concomitant]

REACTIONS (16)
  - BLOOD URINE PRESENT [None]
  - CHEST PAIN [None]
  - DECREASED APPETITE [None]
  - DEHYDRATION [None]
  - DIARRHOEA [None]
  - DYSPNOEA [None]
  - FATIGUE [None]
  - HEADACHE [None]
  - HYPERHIDROSIS [None]
  - LOSS OF CONSCIOUSNESS [None]
  - NIGHT SWEATS [None]
  - PRURITUS [None]
  - SLEEP DISORDER [None]
  - SLUGGISHNESS [None]
  - TEMPERATURE INTOLERANCE [None]
  - WEIGHT DECREASED [None]
